FAERS Safety Report 9423692 (Version 1)
Quarter: 2013Q3

REPORT INFORMATION
  Report Type: Spontaneous
  Country: KR (occurrence: KR)
  Receive Date: 20130727
  Receipt Date: 20130727
  Transmission Date: 20140515
  Serious: Yes (Life-Threatening)
  Sender: FDA-Public Use
  Company Number: PHHY2013KR078546

PATIENT
  Sex: 0

DRUGS (10)
  1. ROPIVACAINE [Suspect]
     Route: 064
  2. EPHEDRINE [Suspect]
  3. LIDOCAINE [Suspect]
     Route: 064
  4. FENTANYL [Suspect]
     Route: 064
  5. SUCCINYLCHOLINE CHLORIDE [Suspect]
     Route: 064
  6. ATROPINE [Suspect]
     Route: 064
  7. THIOPENTAL [Suspect]
     Indication: ANAESTHESIA
     Route: 064
  8. VECURONIUM [Suspect]
     Route: 064
  9. EPINEPHRINE [Suspect]
     Route: 064
  10. SEVOFLURANE [Suspect]
     Route: 064

REACTIONS (2)
  - Bradycardia foetal [Unknown]
  - Foetal exposure during pregnancy [Unknown]
